FAERS Safety Report 7357636-8 (Version None)
Quarter: 2011Q1

REPORT INFORMATION
  Report Type: 
  Country: None (occurrence: None)
  Receive Date: 20110317
  Receipt Date: 20110314
  Transmission Date: 20110831
  Serious: Yes (Death)
  Sender: FDA-Public Use
  Company Number: US-ELI_LILLY_AND_COMPANY-US201101006211

PATIENT
  Sex: Female
  Weight: 92.971 kg

DRUGS (4)
  1. ALIMTA [Suspect]
     Indication: LIPOSARCOMA METASTATIC
     Dosage: 1030 MG, UNK
     Route: 042
     Dates: start: 20100818
  2. CORTICOSTEROIDS [Concomitant]
     Dosage: 8 MG, UNK
     Route: 042
     Dates: start: 20100818
  3. VITAMIN B-12 [Concomitant]
     Dosage: 1000 UG, UNK
     Route: 030
     Dates: start: 20100817
  4. FOLIC ACID [Concomitant]
     Dosage: 1 MG, UNK
     Route: 048
     Dates: start: 20100817

REACTIONS (5)
  - DRUG INEFFECTIVE [None]
  - HOSPICE CARE [None]
  - DEATH [None]
  - OFF LABEL USE [None]
  - PAIN [None]
